FAERS Safety Report 21786242 (Version 1)
Quarter: 2022Q4

REPORT INFORMATION
  Report Type: Spontaneous
  Country: ZA (occurrence: ZA)
  Receive Date: 20221228
  Receipt Date: 20221228
  Transmission Date: 20230113
  Serious: Yes (Other)
  Sender: FDA-Public Use
  Company Number: ZA-NOVOPROD-1006159

PATIENT
  Age: 18 Year
  Sex: Female

DRUGS (1)
  1. LEVEMIR [Suspect]
     Active Substance: INSULIN DETEMIR
     Indication: Diabetes mellitus
     Dosage: 60 IU, QD

REACTIONS (5)
  - Diabetic ketoacidosis [Unknown]
  - Hypoglycaemia [Unknown]
  - Drug hypersensitivity [Unknown]
  - Diabetes mellitus inadequate control [Unknown]
  - Treatment noncompliance [Unknown]
